FAERS Safety Report 5130408-0 (Version None)
Quarter: 2006Q4

REPORT INFORMATION
  Report Type: 
  Country: None (occurrence: None)
  Receive Date: 20061017
  Receipt Date: 20061017
  Transmission Date: 20070319
  Serious: Yes (Death)
  Sender: FDA-Public Use
  Company Number: None

PATIENT
  Age: 82 Year
  Sex: Male
  Weight: 93 kg

DRUGS (2)
  1. OMNIPAQUE 300 [Suspect]
     Indication: ARTHRALGIA
     Dates: start: 20060828, end: 20060828
  2. TRIAMCINOLONE, 0.25% BUPIVACAINE [Suspect]

REACTIONS (4)
  - GAS GANGRENE [None]
  - IATROGENIC INFECTION [None]
  - INJECTION SITE INFECTION [None]
  - SEPSIS [None]
